FAERS Safety Report 9752340 (Version 2)
Quarter: 2013Q4

REPORT INFORMATION
  Report Type: Spontaneous
  Country: BR (occurrence: BR)
  Receive Date: 20131213
  Receipt Date: 20131213
  Transmission Date: 20140711
  Serious: Yes (Death, Other)
  Sender: FDA-Public Use
  Company Number: BR-BAYER-2013-109064

PATIENT
  Sex: Male

DRUGS (1)
  1. NEXAVAR [Suspect]
     Indication: HEPATIC CANCER
     Dosage: UNK
     Route: 048
     Dates: start: 201103

REACTIONS (5)
  - Gastrointestinal haemorrhage [Fatal]
  - Varices oesophageal [Fatal]
  - General physical health deterioration [None]
  - Renal failure [None]
  - Hepatic cancer [Fatal]
